FAERS Safety Report 10791154 (Version 1)
Quarter: 2015Q1

REPORT INFORMATION
  Report Type: Other
  Country: FR (occurrence: FR)
  Receive Date: 20150212
  Receipt Date: 20150212
  Transmission Date: 20150721
  Serious: Yes (Hospitalization)
  Sender: FDA-Public Use
  Company Number: FR-MYLANLABS-2015M1003873

PATIENT

DRUGS (11)
  1. MOVICOL                            /01749801/ [Concomitant]
  2. FONDAPARINUX [Suspect]
     Active Substance: FONDAPARINUX
     Indication: THROMBOSIS PROPHYLAXIS
     Dosage: 1 DF, QD
     Route: 058
     Dates: start: 20140117, end: 20150127
  3. COTAREG [Concomitant]
     Active Substance: HYDROCHLOROTHIAZIDE\VALSARTAN
  4. TAVANIC [Suspect]
     Active Substance: LEVOFLOXACIN
     Indication: BRONCHITIS
     Dosage: UNK
     Dates: start: 20131227, end: 20140104
  5. TAVANIC [Suspect]
     Active Substance: LEVOFLOXACIN
     Indication: BRONCHOPNEUMOPATHY
     Dosage: 2 DF, QD
     Route: 048
     Dates: start: 20140124, end: 20140125
  6. FUROSEMIDE. [Suspect]
     Active Substance: FUROSEMIDE
     Dosage: 60 MG, QD
     Dates: start: 20140130, end: 20140130
  7. VOLTARENE                          /00372303/ [Concomitant]
  8. FONDAPARINUX [Suspect]
     Active Substance: FONDAPARINUX
     Dosage: UNK
     Dates: start: 20131202, end: 20131209
  9. DUROGESIC [Concomitant]
     Active Substance: FENTANYL
  10. ROVAMYCINE                         /00074401/ [Suspect]
     Active Substance: SPIRAMYCIN
     Indication: BRONCHOPNEUMOPATHY
     Dosage: 3 DF, QD
     Route: 042
     Dates: start: 20140126, end: 20140127
  11. LASILIX                            /00032601/ [Concomitant]
     Active Substance: FUROSEMIDE

REACTIONS (8)
  - Rash erythematous [Recovered/Resolved]
  - Rash erythematous [Recovered/Resolved]
  - Acute kidney injury [Recovered/Resolved]
  - Eczema [Unknown]
  - Pyrexia [Recovered/Resolved]
  - Eosinophilia [Unknown]
  - Purpura [Unknown]
  - Prurigo [Unknown]

NARRATIVE: CASE EVENT DATE: 201401
